FAERS Safety Report 4407647-7 (Version None)
Quarter: 2004Q3

REPORT INFORMATION
  Report Type: 
  Country: None (occurrence: None)
  Receive Date: 20040721
  Receipt Date: 20040708
  Transmission Date: 20050211
  Serious: Yes (Hospitalization)
  Sender: FDA-Public Use
  Company Number: US-JNJFOC-20040703088

PATIENT
  Age: 40 Year
  Sex: Female
  Weight: 70.7611 kg

DRUGS (2)
  1. ORTHO TRI-CYCLEN LO [Suspect]
     Indication: MENSTRUAL DISORDER
     Dosage: 1 DOSE (S), 1 IN 1 DAY, ORAL
     Route: 048
     Dates: start: 20031201, end: 20040301
  2. BIAXIN [Suspect]
     Indication: BRONCHITIS
     Dates: start: 20040301

REACTIONS (6)
  - AGITATION [None]
  - ANXIETY [None]
  - BLOOD PRESSURE INCREASED [None]
  - BRONCHITIS [None]
  - DEPRESSED MOOD [None]
  - METRORRHAGIA [None]
